FAERS Safety Report 4946520-2 (Version None)
Quarter: 2006Q1

REPORT INFORMATION
  Report Type: 
  Country: None (occurrence: None)
  Receive Date: 20060317
  Receipt Date: 20060307
  Transmission Date: 20060701
  Serious: Yes (Other)
  Sender: FDA-Public Use
  Company Number: ES-ABBOTT-06P-144-0327596-00

PATIENT
  Age: 39 Year
  Sex: Male

DRUGS (6)
  1. VALPROIC ACID [Suspect]
     Indication: PETIT MAL EPILEPSY
     Dosage: NOT REPORTED
     Dates: start: 19880601
  2. VALPROIC ACID [Suspect]
     Indication: GRAND MAL CONVULSION
  3. VALPROIC ACID [Suspect]
     Indication: AUTOMATISM
  4. CARBAMAZEPINE [Concomitant]
     Indication: PETIT MAL EPILEPSY
     Dosage: NOT REPORTED
  5. CARBAMAZEPINE [Concomitant]
     Indication: GRAND MAL CONVULSION
  6. CARBAMAZEPINE [Concomitant]
     Indication: AUTOMATISM

REACTIONS (3)
  - BLOOD TRIGLYCERIDES INCREASED [None]
  - HEPATIC STEATOSIS [None]
  - PLATELET COUNT DECREASED [None]
